FAERS Safety Report 9060878 (Version 1)
Quarter: 2013Q1

REPORT INFORMATION
  Report Type: Spontaneous
  Country: FR (occurrence: FR)
  Receive Date: 20130204
  Receipt Date: 20130204
  Transmission Date: 20140127
  Serious: Yes (Hospitalization)
  Sender: FDA-Public Use
  Company Number: FR-ELI_LILLY_AND_COMPANY-FR201301009403

PATIENT
  Age: 73 Year
  Sex: Female

DRUGS (2)
  1. GEMZAR [Suspect]
     Indication: LEIOMYOSARCOMA
     Dosage: UNK
     Route: 042
     Dates: start: 20100303, end: 20120914
  2. TEMERIT [Concomitant]
     Dosage: UNK
     Route: 048
     Dates: end: 20120912

REACTIONS (2)
  - Raynaud^s phenomenon [Not Recovered/Not Resolved]
  - Blood homocysteine increased [Not Recovered/Not Resolved]
